FAERS Safety Report 4300245-5 (Version None)
Quarter: 2004Q1

REPORT INFORMATION
  Report Type: 
  Country: None (occurrence: None)
  Receive Date: 20040218
  Receipt Date: 20040130
  Transmission Date: 20041129
  Serious: Yes (Hospitalization, Other)
  Sender: FDA-Public Use
  Company Number: EWC040237879

PATIENT
  Sex: Female

DRUGS (4)
  1. OLANZAPINE [Suspect]
     Indication: DEPRESSION
     Dosage: 5 MG/DAY
     Dates: start: 20030514, end: 20030606
  2. ESCITALOPRAM OXALATE [Concomitant]
  3. LAMICTAL [Concomitant]
  4. LORAZEPAM [Concomitant]

REACTIONS (14)
  - ASTHENIA [None]
  - DECREASED ACTIVITY [None]
  - DRUG INTERACTION [None]
  - EXANTHEM [None]
  - FALL [None]
  - GENERAL PHYSICAL HEALTH DETERIORATION [None]
  - HAEMOTHORAX [None]
  - INFECTION [None]
  - LEUKOPENIA [None]
  - MARKEDLY REDUCED DIETARY INTAKE [None]
  - NORMOCHROMIC NORMOCYTIC ANAEMIA [None]
  - PRURITUS GENERALISED [None]
  - RIB FRACTURE [None]
  - URINARY TRACT INFECTION [None]
